FAERS Safety Report 10292268 (Version 2)
Quarter: 2014Q3

REPORT INFORMATION
  Report Type: Report from Study
  Country: TH (occurrence: TH)
  Receive Date: 20140710
  Receipt Date: 20140725
  Transmission Date: 20150326
  Serious: Yes (Life-Threatening)
  Sender: FDA-Public Use
  Company Number: PHHY2014TH084006

PATIENT
  Age: 23 Year
  Sex: Female
  Weight: 57 kg

DRUGS (3)
  1. EVEROLIMUS [Suspect]
     Active Substance: EVEROLIMUS
     Indication: ANGIOMYOLIPOMA
     Dosage: 10 MG, UNK
     Route: 048
     Dates: start: 20140625, end: 20140707
  2. DEPAKINE [Concomitant]
     Active Substance: VALPROATE SODIUM
     Dosage: 200 MG, QD
  3. TOPAMAX [Concomitant]
     Active Substance: TOPIRAMATE
     Indication: EPILEPSY
     Dosage: 150 MG, QD

REACTIONS (4)
  - Somnolence [Recovered/Resolved with Sequelae]
  - Fall [Not Recovered/Not Resolved]
  - Shock [Recovered/Resolved with Sequelae]
  - Internal injury [Recovered/Resolved with Sequelae]

NARRATIVE: CASE EVENT DATE: 20140707
